FAERS Safety Report 25553683 (Version 1)
Quarter: 2025Q3

REPORT INFORMATION
  Report Type: Spontaneous
  Country: EU (occurrence: EU)
  Receive Date: 20250715
  Receipt Date: 20250715
  Transmission Date: 20251020
  Serious: Yes (Hospitalization, Other)
  Sender: CHEPLAPHARM
  Company Number: None

PATIENT
  Age: 59 Year
  Sex: Female
  Weight: 72 kg

DRUGS (13)
  1. QUETIAPINE [Suspect]
     Active Substance: QUETIAPINE
     Indication: Psychotic disorder
     Dosage: DAILY DOSE: 900 MILLIGRAM
     Route: 048
     Dates: start: 20230601
  2. QUETIAPINE [Suspect]
     Active Substance: QUETIAPINE
     Indication: Psychotic disorder
     Dosage: DAILY DOSE: 600 MILLIGRAM
     Route: 048
     Dates: start: 202408
  3. QUETIAPINE [Suspect]
     Active Substance: QUETIAPINE
     Indication: Psychotic disorder
     Dosage: INCREASED ?DAILY DOSE: 800 MILLIGRAM
     Route: 048
     Dates: start: 202408
  4. QUETIAPINE [Suspect]
     Active Substance: QUETIAPINE
     Indication: Psychotic disorder
     Dosage: INCREASED DOSE?DAILY DOSE: 900 MILLIGRAM
     Route: 048
     Dates: start: 20250429
  5. LOXAPINE [Suspect]
     Active Substance: LOXAPINE
     Indication: Psychotic disorder
     Dosage: DAILY DOSE: 50 MILLIGRAM
     Route: 048
     Dates: start: 20250424, end: 20250430
  6. LOXAPINE [Suspect]
     Active Substance: LOXAPINE
     Indication: Psychotic disorder
     Dosage: PERMANENT DISCONTINUATION ?DAILY DOSE: 100 MILLIGRAM
     Route: 048
     Dates: end: 20250518
  7. OXCARBAZEPINE [Suspect]
     Active Substance: OXCARBAZEPINE
     Indication: Bipolar disorder
     Dosage: DAILY DOSE: 300 MILLIGRAM
     Route: 048
     Dates: start: 20250509
  8. OXCARBAZEPINE [Suspect]
     Active Substance: OXCARBAZEPINE
     Indication: Bipolar disorder
     Dosage: DAILY DOSE: 300 MILLIGRAM
     Route: 048
     Dates: start: 20250516
  9. OXCARBAZEPINE [Suspect]
     Active Substance: OXCARBAZEPINE
     Indication: Bipolar disorder
     Route: 048
  10. VALIUM [Suspect]
     Active Substance: DIAZEPAM
  11. ZOPICLONE [Concomitant]
     Active Substance: ZOPICLONE
  12. TERALITHE [Concomitant]
     Active Substance: LITHIUM CARBONATE
     Indication: Bipolar disorder
     Dosage: DAILY DOSE: 1000 MILLIGRAM
     Dates: start: 20250429
  13. TERALITHE [Concomitant]
     Active Substance: LITHIUM CARBONATE
     Indication: Bipolar disorder
     Dosage: DAILY DOSE: 600 MILLIGRAM

REACTIONS (2)
  - Intestinal obstruction [Recovered/Resolved with Sequelae]
  - Systemic inflammatory response syndrome [Unknown]

NARRATIVE: CASE EVENT DATE: 20250501
